FAERS Safety Report 7494784-6 (Version None)
Quarter: 2011Q2

REPORT INFORMATION
  Report Type: 
  Country: None (occurrence: None)
  Receive Date: 20110520
  Receipt Date: 20110511
  Transmission Date: 20111010
  Serious: Yes (Hospitalization)
  Sender: FDA-Public Use
  Company Number: A0808101A

PATIENT
  Age: 53 Year
  Sex: Male
  Weight: 77.7 kg

DRUGS (2)
  1. AVANDIA [Suspect]
     Dosage: 8MG PER DAY
     Route: 065
     Dates: start: 20050301, end: 20050301
  2. AVANDARYL [Suspect]
     Dosage: 4MG TWICE PER DAY
     Route: 065
     Dates: start: 20070501, end: 20071015

REACTIONS (3)
  - MYOCARDIAL ISCHAEMIA [None]
  - MYOCARDIAL INFARCTION [None]
  - CORONARY ARTERY DISEASE [None]
